FAERS Safety Report 9559287 (Version 2)
Quarter: 2013Q3

REPORT INFORMATION
  Report Type: Report from Study
  Country: AU (occurrence: AU)
  Receive Date: 20130927
  Receipt Date: 20130927
  Transmission Date: 20140515
  Serious: Yes (Other)
  Sender: FDA-Public Use
  Company Number: PHHY2012AU107290

PATIENT
  Age: 25 Year
  Sex: Male

DRUGS (4)
  1. CLOZARIL [Suspect]
     Indication: SCHIZOPHRENIA, PARANOID TYPE
     Dosage: 150 MG
     Dates: start: 20090701, end: 20121116
  2. DIETARY FATBLASTER [Concomitant]
     Dosage: UNK
  3. ASENAPINE [Concomitant]
     Dosage: UNK
  4. LITHIUM CARBONATE [Concomitant]
     Dosage: 500 MG,AT NIGHT

REACTIONS (10)
  - Suicidal ideation [Unknown]
  - Stress [Unknown]
  - Weight decreased [Unknown]
  - Anxiety [Unknown]
  - Negative thoughts [Unknown]
  - Apathy [Unknown]
  - Feeling abnormal [Unknown]
  - Neutropenia [Unknown]
  - White blood cell count decreased [Recovered/Resolved]
  - Eosinophil count increased [Recovering/Resolving]
